FAERS Safety Report 4891211-X (Version None)
Quarter: 2006Q1

REPORT INFORMATION
  Report Type: 
  Country: None (occurrence: None)
  Receive Date: 20060125
  Receipt Date: 20041230
  Transmission Date: 20060701
  Serious: Yes (Hospitalization)
  Sender: FDA-Public Use
  Company Number: US-MERCK-0501USA00014

PATIENT
  Age: 52 Year
  Sex: Female
  Weight: 64 kg

DRUGS (11)
  1. DIOVAN [Concomitant]
     Route: 065
  2. DOXEPIN HYDROCHLORIDE [Concomitant]
     Route: 065
  3. PRAMEGEL [Concomitant]
     Route: 065
  4. REGLAN [Concomitant]
     Route: 065
  5. ULTRAVATE [Concomitant]
     Route: 065
  6. ADVAIR DISKUS 100/50 [Concomitant]
     Route: 065
  7. PRILOSEC [Concomitant]
     Route: 065
  8. ESTROPIPATE [Concomitant]
     Route: 065
  9. HUMIBID [Concomitant]
     Route: 065
  10. ZYRTEC [Concomitant]
     Route: 065
  11. VIOXX [Suspect]
     Indication: BACK PAIN
     Route: 048
     Dates: start: 19991019, end: 20041018

REACTIONS (7)
  - ACUTE SINUSITIS [None]
  - BARRETT'S OESOPHAGUS [None]
  - DYSPHAGIA [None]
  - LACUNAR INFARCTION [None]
  - OESOPHAGITIS [None]
  - PLEURITIC PAIN [None]
  - UPPER RESPIRATORY TRACT INFECTION [None]
